FAERS Safety Report 4928434-7 (Version None)
Quarter: 2006Q1

REPORT INFORMATION
  Report Type: 
  Country: None (occurrence: None)
  Receive Date: 20060223
  Receipt Date: 20060210
  Transmission Date: 20060701
  Serious: Yes (Death, Other)
  Sender: FDA-Public Use
  Company Number: 200610696GDS

PATIENT

DRUGS (1)
  1. APROTININ [Suspect]
     Indication: PROPHYLAXIS
     Dosage: SEE IMAGE
     Route: 042

REACTIONS (6)
  - CEREBROVASCULAR ACCIDENT [None]
  - INFECTION [None]
  - MYOCARDIAL INFARCTION [None]
  - RENAL FAILURE [None]
  - RENAL IMPAIRMENT [None]
  - SURGICAL PROCEDURE REPEATED [None]
